FAERS Safety Report 8515358-1 (Version None)
Quarter: 2012Q3

REPORT INFORMATION
  Report Type: 
  Country: None (occurrence: None)
  Receive Date: 20120717
  Receipt Date: 20120703
  Transmission Date: 20120928
  Serious: Yes (Congenital Anomaly, Other)
  Sender: FDA-Public Use
  Company Number: US-ELI_LILLY_AND_COMPANY-US201207001581

PATIENT

DRUGS (2)
  1. PROZAC [Suspect]
     Dosage: UNK UNK, UNKNOWN
     Route: 064
  2. PROZAC [Suspect]
     Dosage: UNK UNK, UNKNOWN
     Route: 064

REACTIONS (2)
  - FOETAL EXPOSURE DURING PREGNANCY [None]
  - AORTIC STENOSIS [None]
